FAERS Safety Report 7004012-3 (Version None)
Quarter: 2010Q3

REPORT INFORMATION
  Report Type: 
  Country: None (occurrence: None)
  Receive Date: 20100920
  Receipt Date: 20100108
  Transmission Date: 20110219
  Serious: No
  Sender: FDA-Public Use
  Company Number: US-WYE-H12918310

PATIENT
  Sex: Female

DRUGS (1)
  1. PRISTIQ [Suspect]
     Dosage: UNKNOWN
     Route: 065
     Dates: start: 20090105

REACTIONS (4)
  - ABASIA [None]
  - APHASIA [None]
  - HALLUCINATION [None]
  - SOMNOLENCE [None]
